FAERS Safety Report 9840369 (Version 1)
Quarter: 2014Q1

REPORT INFORMATION
  Report Type: Spontaneous
  Country: US (occurrence: None)
  Receive Date: 20140121
  Receipt Date: 20140121
  Transmission Date: 20141002
  Serious: No
  Sender: FDA-Public Use
  Company Number: None

PATIENT
  Age: 50 Year
  Sex: Male
  Weight: 72.58 kg

DRUGS (1)
  1. MORPHINE SULFATE ER [Suspect]
     Indication: PAIN
     Route: 048

REACTIONS (2)
  - Lip swelling [None]
  - Product quality issue [None]
